FAERS Safety Report 23183519 (Version 1)
Quarter: 2023Q4

REPORT INFORMATION
  Report Type: Spontaneous
  Country: CA (occurrence: CA)
  Receive Date: 20231114
  Receipt Date: 20231114
  Transmission Date: 20240110
  Serious: Yes (Other)
  Sender: FDA-Public Use
  Company Number: CA-009507513-2311USA003645

PATIENT
  Age: 48 Year
  Sex: Female

DRUGS (1)
  1. KEYTRUDA [Suspect]
     Active Substance: PEMBROLIZUMAB
     Indication: Breast cancer
     Dosage: UNK
     Route: 065
     Dates: start: 2021

REACTIONS (9)
  - Neuropathy peripheral [Unknown]
  - Myectomy [Unknown]
  - Dry eye [Unknown]
  - Eye pain [Unknown]
  - Arthralgia [Unknown]
  - Pruritus [Unknown]
  - Dry mouth [Unknown]
  - Eczema [Unknown]
  - Product dose omission issue [Unknown]

NARRATIVE: CASE EVENT DATE: 20210101
